FAERS Safety Report 11292772 (Version 6)
Quarter: 2015Q3

REPORT INFORMATION
  Report Type: Spontaneous
  Country: DE (occurrence: DE)
  Receive Date: 20150722
  Receipt Date: 20150812
  Transmission Date: 20151125
  Serious: Yes (Other)
  Sender: FDA-Public Use
  Company Number: DE-MERZ NORTH AMERICA, INC.-15MRZ-00367

PATIENT
  Age: 48 Year
  Sex: Female

DRUGS (1)
  1. XEOMIN [Suspect]
     Active Substance: INCOBOTULINUMTOXINA
     Indication: SKIN COSMETIC PROCEDURE
     Dates: start: 2010, end: 2010

REACTIONS (1)
  - Cutaneous sarcoidosis [Recovering/Resolving]

NARRATIVE: CASE EVENT DATE: 2010
